FAERS Safety Report 15111969 (Version 4)
Quarter: 2019Q3

REPORT INFORMATION
  Report Type: Report from Study
  Country: US (occurrence: US)
  Receive Date: 20180705
  Receipt Date: 20190723
  Transmission Date: 20191004
  Serious: Yes (Other)
  Sender: FDA-Public Use
  Company Number: US-TAKEDA-2018TUS018017

PATIENT
  Sex: Female

DRUGS (3)
  1. PONATINIB [Suspect]
     Active Substance: PONATINIB
     Dosage: 15 MILLIGRAM, QD
     Route: 048
  2. IMBRUVICA [Concomitant]
     Active Substance: IBRUTINIB
     Dosage: UNK
  3. PONATINIB [Suspect]
     Active Substance: PONATINIB
     Indication: ACUTE LYMPHOCYTIC LEUKAEMIA
     Dosage: 30 MILLIGRAM, QD
     Route: 048
     Dates: start: 20180216

REACTIONS (29)
  - Insomnia [Unknown]
  - Haemoglobin decreased [Unknown]
  - Gastrooesophageal reflux disease [Unknown]
  - Hypophagia [Unknown]
  - Hypokalaemia [Unknown]
  - Rash [Unknown]
  - Diarrhoea [Unknown]
  - Arthralgia [Unknown]
  - Red blood cell count decreased [Unknown]
  - Lymphocyte count decreased [Unknown]
  - Blood alkaline phosphatase increased [Unknown]
  - Rheumatoid arthritis [Unknown]
  - Migraine [Unknown]
  - Haematocrit decreased [Unknown]
  - Hypernatraemia [Unknown]
  - Red cell distribution width increased [Unknown]
  - Fatigue [Unknown]
  - Adrenal insufficiency [Unknown]
  - Failure to thrive [Unknown]
  - Dehydration [Unknown]
  - Hypopituitarism [Unknown]
  - Mean cell volume increased [Unknown]
  - Blood uric acid increased [Unknown]
  - Tooth disorder [Unknown]
  - Hypothyroidism [Unknown]
  - Vomiting [Unknown]
  - Electrocardiogram QT prolonged [Unknown]
  - Thrombosis [Unknown]
  - Nausea [Unknown]
